FAERS Safety Report 8933571 (Version 1)
Quarter: 2012Q4

REPORT INFORMATION
  Report Type: 
  Country: US (occurrence: US)
  Receive Date: 20121128
  Receipt Date: 20121128
  Transmission Date: 20130627
  Serious: No
  Sender: FDA-Public Use
  Company Number: US-ABBOTT-12P-163-0999610-00

PATIENT
  Sex: Male
  Weight: 70.37 kg

DRUGS (3)
  1. ANDROGEL [Suspect]
     Indication: BLOOD TESTOSTERONE DECREASED
     Dosage: Four pump actuations daily
     Dates: start: 2011, end: 2012
  2. ANDROGEL [Suspect]
     Dosage: Two pump actuations per day
     Dates: start: 2011, end: 2011
  3. ANDROGEL [Suspect]
     Dates: start: 2012

REACTIONS (2)
  - Headache [Recovered/Resolved]
  - Blood testosterone decreased [Not Recovered/Not Resolved]
